FAERS Safety Report 12220747 (Version 2)
Quarter: 2016Q1

REPORT INFORMATION
  Report Type: Spontaneous
  Country: US (occurrence: US)
  Receive Date: 20160330
  Receipt Date: 20160330
  Transmission Date: 20160526
  Serious: Yes (Hospitalization)
  Sender: FDA-Public Use
  Company Number: CHPA2016US003893

PATIENT
  Age: 82 Year
  Sex: Female

DRUGS (1)
  1. VOLTAREN [Suspect]
     Active Substance: DICLOFENAC SODIUM
     Indication: SCIATICA
     Dosage: 2 G, 4 TO 5 TIMES A DAY
     Route: 061
     Dates: start: 20160315, end: 20160324

REACTIONS (5)
  - Vaginal haemorrhage [Recovered/Resolved]
  - Drug administered at inappropriate site [Unknown]
  - Cystitis [Unknown]
  - Product use issue [Unknown]
  - Inappropriate schedule of drug administration [Unknown]

NARRATIVE: CASE EVENT DATE: 20160315
